FAERS Safety Report 9014753 (Version 1)
Quarter: 2013Q1

REPORT INFORMATION
  Report Type: Spontaneous
  Country: US (occurrence: US)
  Receive Date: 20130115
  Receipt Date: 20130115
  Transmission Date: 20140127
  Serious: Yes (Other)
  Sender: FDA-Public Use
  Company Number: US-NICOBRDEVP-2013-00028

PATIENT
  Age: 53 Year
  Sex: Male

DRUGS (1)
  1. FENTANYL [Suspect]
     Indication: PAIN
     Dosage: 100MCG, 1 PATCH EVERY 48 HRS
     Route: 062
     Dates: start: 2011

REACTIONS (6)
  - Convulsion [Recovered/Resolved]
  - Condition aggravated [Recovered/Resolved]
  - Muscle spasms [Recovered/Resolved]
  - Arthralgia [Recovered/Resolved]
  - Feeling of body temperature change [Recovered/Resolved]
  - Anxiety [Recovered/Resolved]
